FAERS Safety Report 5141409-0 (Version None)
Quarter: 2006Q4

REPORT INFORMATION
  Report Type: 
  Country: None (occurrence: None)
  Receive Date: 20061101
  Receipt Date: 20061025
  Transmission Date: 20070319
  Serious: Yes (Hospitalization, Disabling, Other)
  Sender: FDA-Public Use
  Company Number: GB-GLAXOSMITHKLINE-B0444625A

PATIENT
  Age: 78 Year
  Sex: Female

DRUGS (2)
  1. PAROXETINE HCL [Suspect]
     Indication: DRUG USE FOR UNKNOWN INDICATION
     Route: 048
     Dates: start: 19960101, end: 20060712
  2. TRAMADOL HCL [Suspect]
     Indication: PAIN
     Dosage: 50MG FOUR TIMES PER DAY
     Route: 048
     Dates: start: 20060623, end: 20060710

REACTIONS (5)
  - DELIRIUM [None]
  - HALLUCINATION [None]
  - MYOCLONUS [None]
  - SEROTONIN SYNDROME [None]
  - TREMOR [None]
